FAERS Safety Report 8408180-8 (Version None)
Quarter: 2012Q2

REPORT INFORMATION
  Report Type: 
  Country: None (occurrence: None)
  Receive Date: 20120604
  Receipt Date: 20120531
  Transmission Date: 20120825
  Serious: Yes (Other)
  Sender: FDA-Public Use
  Company Number: CHPA2012US011404

PATIENT
  Age: 51 Year
  Sex: Female

DRUGS (2)
  1. LYRICA [Suspect]
     Indication: FIBROMYALGIA
     Dosage: UNK, UNK
     Route: 065
  2. VOLTAREN [Suspect]
     Indication: ARTHRITIS
     Dosage: UNK, FOUR TIMES A DAY
     Route: 061
     Dates: start: 20090101

REACTIONS (9)
  - OEDEMA PERIPHERAL [None]
  - GAIT DISTURBANCE [None]
  - GASTRITIS [None]
  - PAIN [None]
  - INCREASED APPETITE [None]
  - CONSTIPATION [None]
  - CHRONIC OBSTRUCTIVE PULMONARY DISEASE [None]
  - BURNING SENSATION [None]
  - FIBROMYALGIA [None]
